FAERS Safety Report 11389312 (Version 1)
Quarter: 2015Q3

REPORT INFORMATION
  Report Type: Other
  Country: IN (occurrence: IN)
  Receive Date: 20150817
  Receipt Date: 20150817
  Transmission Date: 20151125
  Serious: Yes (Hospitalization)
  Sender: FDA-Public Use
  Company Number: IN-ENDO PHARMACEUTICALS INC-2015-002301

PATIENT
  Age: 45 Year
  Sex: Female

DRUGS (3)
  1. IBUPROFEN TABLETS [Suspect]
     Active Substance: IBUPROFEN
     Indication: ARTHRALGIA
     Route: 065
  2. TRIHEXYPHENIDYL [Suspect]
     Active Substance: TRIHEXYPHENIDYL
     Indication: SCHIZOPHRENIA
     Route: 065
  3. HALOPERIDOL TABLETS 10MG [Suspect]
     Active Substance: HALOPERIDOL
     Indication: SCHIZOPHRENIA
     Route: 065

REACTIONS (4)
  - Necrosis ischaemic [None]
  - Large intestine perforation [Recovered/Resolved]
  - Intestinal obstruction [Recovered/Resolved]
  - Tachycardia [None]
